FAERS Safety Report 8269758-8 (Version None)
Quarter: 2012Q2

REPORT INFORMATION
  Report Type: 
  Country: None (occurrence: None)
  Receive Date: 20120405
  Receipt Date: 20120326
  Transmission Date: 20120825
  Serious: Yes (Other)
  Sender: FDA-Public Use
  Company Number: 2012P1011617

PATIENT

DRUGS (3)
  1. PREDNISOLONE [Suspect]
     Indication: LUPUS NEPHRITIS
     Dosage: 60 MG, QD, PO
     Route: 048
  2. ATACICEPT (NO PREF. NAME) [Suspect]
     Indication: LUPUS NEPHRITIS
     Dosage: 150 MG, BIW, SC; 150 MG, QW, SC
     Route: 058
  3. MYCOPHENOLATE MOFETIL [Suspect]
     Indication: LUPUS NEPHRITIS
     Dosage: 500 MG, BID, PO;1000 MG, BID, PO;1500 MG, BID, PO
     Route: 048

REACTIONS (2)
  - BLOOD IMMUNOGLOBULIN G DECREASED [None]
  - BACTERAEMIA [None]
